FAERS Safety Report 8769680 (Version 4)
Quarter: 2013Q2

REPORT INFORMATION
  Report Type: Spontaneous
  Country: US (occurrence: US)
  Receive Date: 20120905
  Receipt Date: 20130603
  Transmission Date: 20140414
  Serious: No
  Sender: FDA-Public Use
  Company Number: US-009507513-1208USA009197

PATIENT
  Sex: Male

DRUGS (3)
  1. PEG-INTRON [Suspect]
     Indication: HEPATITIS C
     Dosage: REDIPEN
     Dates: start: 20120629, end: 20130529
  2. REBETOL [Suspect]
     Indication: HEPATITIS C
     Dosage: UNK
     Dates: start: 20120629, end: 20130529
  3. TELAPREVIR [Suspect]
     Indication: HEPATITIS C
     Dosage: UNK
     Dates: start: 20120629, end: 20120921

REACTIONS (28)
  - Nausea [Unknown]
  - Cough [Unknown]
  - Rash [Unknown]
  - Rash generalised [Unknown]
  - Pruritus [Unknown]
  - Frustration [Unknown]
  - Mood altered [Unknown]
  - Abdominal discomfort [Unknown]
  - Fatigue [Unknown]
  - Rash generalised [Unknown]
  - Injection site rash [Unknown]
  - Nausea [Unknown]
  - Injection site rash [Unknown]
  - Rash generalised [Unknown]
  - Rash pruritic [Unknown]
  - Memory impairment [Unknown]
  - Depression [Unknown]
  - Dry mouth [Unknown]
  - Stomatitis [Unknown]
  - Dysgeusia [Unknown]
  - Dehydration [Unknown]
  - Asthenia [Unknown]
  - Cough [Unknown]
  - Disturbance in attention [Unknown]
  - Irritability [Recovering/Resolving]
  - Depression [Recovering/Resolving]
  - Dry skin [Unknown]
  - Erythema [Unknown]
